FAERS Safety Report 17680486 (Version 2)
Quarter: 2020Q2

REPORT INFORMATION
  Report Type: Spontaneous
  Country: FR (occurrence: FR)
  Receive Date: 20200417
  Receipt Date: 20200601
  Transmission Date: 20200714
  Serious: Yes (Other)
  Sender: FDA-Public Use
  Company Number: FR-MYLANLABS-2020M1039086

PATIENT
  Age: 82 Year
  Sex: Male

DRUGS (4)
  1. ELIQUIS [Concomitant]
     Active Substance: APIXABAN
     Indication: PRODUCT USED FOR UNKNOWN INDICATION
     Dosage: UNK
  2. PAROXETINE. [Suspect]
     Active Substance: PAROXETINE
     Indication: ANXIETY
     Dosage: UNK
  3. DEROXAT [Suspect]
     Active Substance: PAROXETINE HYDROCHLORIDE
     Indication: ANXIETY
     Dosage: 20 MG, 1D
     Route: 048
  4. XANAX [Concomitant]
     Active Substance: ALPRAZOLAM
     Indication: PRODUCT USED FOR UNKNOWN INDICATION
     Dosage: UNK

REACTIONS (12)
  - Dyspepsia [Unknown]
  - Abdominal pain upper [Unknown]
  - Weight increased [Unknown]
  - Nausea [Unknown]
  - Night sweats [Unknown]
  - Rash [Unknown]
  - Asthenia [Unknown]
  - Yawning [Unknown]
  - Hyperhidrosis [Unknown]
  - Fatigue [Unknown]
  - Depressed level of consciousness [Unknown]
  - Condition aggravated [Unknown]
